FAERS Safety Report 6340559-0 (Version None)
Quarter: 2009Q3

REPORT INFORMATION
  Report Type: 
  Country: None (occurrence: None)
  Receive Date: 20090904
  Receipt Date: 20090825
  Transmission Date: 20100115
  Serious: Yes (Other)
  Sender: FDA-Public Use
  Company Number: US-JNJFOC-20090808515

PATIENT
  Age: 71 Year
  Sex: Male
  Weight: 204.12 kg

DRUGS (1)
  1. UNSPECIFIED TRAMADOL [Suspect]
     Indication: ARTHRALGIA
     Route: 048

REACTIONS (2)
  - DEPRESSED LEVEL OF CONSCIOUSNESS [None]
  - RESPIRATORY FAILURE [None]
